FAERS Safety Report 26125569 (Version 1)
Quarter: 2025Q4

REPORT INFORMATION
  Report Type: Spontaneous
  Country: CN (occurrence: CN)
  Receive Date: 20251205
  Receipt Date: 20251205
  Transmission Date: 20260118
  Serious: Yes (Death, Other)
  Sender: ROCHE
  Company Number: CN-ROCHE-10000451864

PATIENT
  Sex: Male

DRUGS (1)
  1. BALOXAVIR MARBOXIL [Suspect]
     Active Substance: BALOXAVIR MARBOXIL
     Indication: Influenza
     Route: 065

REACTIONS (3)
  - Sudden death [Fatal]
  - Syncope [Unknown]
  - Dehydration [Unknown]
